FAERS Safety Report 15852766 (Version 7)
Quarter: 2022Q1

REPORT INFORMATION
  Report Type: Spontaneous
  Country: DE (occurrence: DE)
  Receive Date: 20190122
  Receipt Date: 20220219
  Transmission Date: 20220424
  Serious: Yes (Hospitalization, Other)
  Sender: FDA-Public Use
  Company Number: DE-SA-2018SA300255

PATIENT
  Age: 68 Year
  Sex: Male

DRUGS (37)
  1. GABAPENTIN [Suspect]
     Active Substance: GABAPENTIN
     Indication: Trigeminal neuralgia
     Dosage: INCREASED DOSE TO 2400 MILLIGRAM, ONCE A DAY
     Route: 065
  2. GABAPENTIN [Suspect]
     Active Substance: GABAPENTIN
     Indication: Post herpetic neuralgia
     Dosage: 1800 MILLIGRAM, ONCE A DAY (600 MG, 3 TIMES A DAY)
     Route: 065
  3. GABAPENTIN [Suspect]
     Active Substance: GABAPENTIN
     Indication: Pain
     Dosage: 1 DOSAGE FORM, 3 TIMES A DAY (300-300-300)
     Route: 065
  4. GABAPENTIN [Suspect]
     Active Substance: GABAPENTIN
     Dosage: 1 DOSAGE FORM, 3 TIMES A DAY (600-300-300 MG (WEEK 17)
     Route: 065
  5. GABAPENTIN [Suspect]
     Active Substance: GABAPENTIN
     Dosage: 900 MILLIGRAM, ONCE A DAY (300-300-300)
     Route: 065
  6. GABAPENTIN [Suspect]
     Active Substance: GABAPENTIN
     Dosage: UNK, 600-300-300 MG (THE MAN TOOK INCREASED DOSE UP TO 2400 MG/DAY)
     Route: 065
  7. GABAPENTIN [Suspect]
     Active Substance: GABAPENTIN
     Dosage: 300 MILLIGRAM, ONCE A DAY
     Route: 065
  8. GABAPENTIN [Suspect]
     Active Substance: GABAPENTIN
     Dosage: 600 MILLIGRAM, 3 TIMES A DAY (WEEK 8)
     Route: 065
  9. HYDROMORPHONE [Suspect]
     Active Substance: HYDROMORPHONE
     Indication: Pain
     Dosage: 4 MILLIGRAM, TWO TIMES A DAY (4 - 0 - 4 MG)
     Route: 065
  10. HYDROMORPHONE [Suspect]
     Active Substance: HYDROMORPHONE
     Indication: Trigeminal neuralgia
     Dosage: 4 MG, 2X/DAY (4 - 0 - 4 MG)
     Route: 065
  11. HYDROMORPHONE [Suspect]
     Active Substance: HYDROMORPHONE
     Indication: Post herpetic neuralgia
  12. LIDOCAINE [Suspect]
     Active Substance: LIDOCAINE
     Indication: Pain
     Dosage: UNK
     Route: 061
  13. PREGABALIN [Suspect]
     Active Substance: PREGABALIN
     Indication: Herpes zoster
     Dosage: 600 MILLIGRAM
     Route: 065
  14. PREGABALIN [Suspect]
     Active Substance: PREGABALIN
     Indication: Post herpetic neuralgia
  15. ACYCLOVIR [Suspect]
     Active Substance: ACYCLOVIR
     Indication: Herpes zoster
     Dosage: UNK
     Route: 065
  16. AMBROXOL [Suspect]
     Active Substance: AMBROXOL
     Indication: Pain
     Dosage: 20 PERCENT, OINTMENT (CREAM)
     Route: 061
  17. AMBROXOL [Suspect]
     Active Substance: AMBROXOL
     Indication: Post herpetic neuralgia
     Dosage: UNK
     Route: 065
  18. AMITRIPTYLINE HYDROCHLORIDE [Suspect]
     Active Substance: AMITRIPTYLINE HYDROCHLORIDE
     Indication: Trigeminal neuralgia
     Dosage: 20 MILLIGRAM
     Route: 065
  19. AMITRIPTYLINE HYDROCHLORIDE [Suspect]
     Active Substance: AMITRIPTYLINE HYDROCHLORIDE
     Indication: Pain
     Dosage: 25 MILLIGRAM, ONCE A DAY (10 DROPS)
     Route: 065
  20. AMITRIPTYLINE HYDROCHLORIDE [Suspect]
     Active Substance: AMITRIPTYLINE HYDROCHLORIDE
     Dosage: 10 DOSAGE FORM, ONCE A DAY (10 DROPS (WEEK 8)
     Route: 065
  21. AMITRIPTYLINE HYDROCHLORIDE [Suspect]
     Active Substance: AMITRIPTYLINE HYDROCHLORIDE
     Dosage: UNK
     Route: 065
  22. CAPSAICIN [Suspect]
     Active Substance: CAPSAICIN
     Indication: Post herpetic neuralgia
     Route: 061
  23. LIDOCAINE HYDROCHLORIDE [Suspect]
     Active Substance: LIDOCAINE HYDROCHLORIDE
     Indication: Trigeminal neuralgia
     Dosage: UNK (AT NIGHT)
     Route: 061
  24. LIDOCAINE HYDROCHLORIDE [Suspect]
     Active Substance: LIDOCAINE HYDROCHLORIDE
     Indication: Pain
  25. LIDOCAINE HYDROCHLORIDE [Suspect]
     Active Substance: LIDOCAINE HYDROCHLORIDE
     Indication: Post herpetic neuralgia
  26. LIDOCAINE [Suspect]
     Active Substance: LIDOCAINE
     Indication: Pain
     Dosage: UNK
     Route: 050
  27. OXCARBAZEPINE [Suspect]
     Active Substance: OXCARBAZEPINE
     Indication: Trigeminal neuralgia
     Dosage: 600 MG, UNK, WEEK 8
     Route: 065
  28. OXCARBAZEPINE [Suspect]
     Active Substance: OXCARBAZEPINE
     Indication: Pain
     Dosage: 150 MILLIGRAM, TWO TIMES A DAY
     Route: 065
  29. OXCARBAZEPINE [Suspect]
     Active Substance: OXCARBAZEPINE
     Indication: Post herpetic neuralgia
     Dosage: UNK, 4X150 MG; LATER REDUCED TO 2X150 MG
     Route: 065
  30. OXCARBAZEPINE [Suspect]
     Active Substance: OXCARBAZEPINE
     Dosage: 300 MILLIGRAM, ONCE A DAY (150 MG, 2X/DAY)
     Route: 065
  31. TAPENTADOL HYDROCHLORIDE [Suspect]
     Active Substance: TAPENTADOL HYDROCHLORIDE
     Indication: Trigeminal neuralgia
     Dosage: 500 MILLIGRAM, ONCE A DAY
     Route: 065
  32. TAPENTADOL HYDROCHLORIDE [Suspect]
     Active Substance: TAPENTADOL HYDROCHLORIDE
     Indication: Post herpetic neuralgia
     Dosage: 1 DOSAGE FORM, 3 TIMES A DAY (100-100-200 MG (AFTER 8 MONTHS)
     Route: 065
  33. TAPENTADOL HYDROCHLORIDE [Suspect]
     Active Substance: TAPENTADOL HYDROCHLORIDE
     Indication: Pain
     Dosage: 150-150-200 MG
     Route: 065
  34. TAPENTADOL HYDROCHLORIDE [Suspect]
     Active Substance: TAPENTADOL HYDROCHLORIDE
     Dosage: UNK,100-100-200 MG
     Route: 065
  35. DEXKETOPROFEN [Concomitant]
     Active Substance: DEXKETOPROFEN
     Indication: Post herpetic neuralgia
     Dosage: UNK, FOR 60 MINUTES
     Route: 050
  36. DEXAMETHASONE [Concomitant]
     Active Substance: DEXAMETHASONE
     Indication: Pain
     Dosage: UNK
     Route: 065
  37. DEXAMETHASONE [Concomitant]
     Active Substance: DEXAMETHASONE
     Indication: Post herpetic neuralgia

REACTIONS (29)
  - Confusional state [Unknown]
  - Post herpetic neuralgia [Unknown]
  - Application site erythema [Unknown]
  - Drug eruption [Unknown]
  - Fall [Unknown]
  - Constipation [Unknown]
  - Depression [Unknown]
  - Application site pain [Unknown]
  - Off label use [Unknown]
  - Glaucoma [Unknown]
  - Atrial fibrillation [Unknown]
  - Sleep apnoea syndrome [Recovered/Resolved]
  - Insomnia [Recovered/Resolved]
  - Quality of life decreased [Unknown]
  - Fatigue [Unknown]
  - Blood creatinine increased [Unknown]
  - Liver function test increased [Unknown]
  - Benign prostatic hyperplasia [Unknown]
  - Hypoaesthesia [Unknown]
  - Nasopharyngitis [Unknown]
  - Osteoarthritis [Unknown]
  - Sleep deficit [Recovered/Resolved]
  - Hyperaesthesia [Unknown]
  - Burning sensation [Unknown]
  - Erythema [Unknown]
  - Condition aggravated [Recovered/Resolved]
  - Drug ineffective [Unknown]
  - Intentional product use issue [Unknown]
  - Therapeutic product effect incomplete [Unknown]
